FAERS Safety Report 10251861 (Version 1)
Quarter: 2014Q2

REPORT INFORMATION
  Report Type: Spontaneous
  Country: FR (occurrence: FR)
  Receive Date: 20140623
  Receipt Date: 20140623
  Transmission Date: 20141212
  Serious: Yes (Hospitalization)
  Sender: FDA-Public Use
  Company Number: FR-BRISTOL-MYERS SQUIBB COMPANY-21044862

PATIENT
  Age: 78 Year
  Sex: Female

DRUGS (2)
  1. GLUCOPHAGE TABS 1000 MG [Suspect]
     Dosage: TOTAL DOSE: 4DF?STRENTH: 1000MG?FILM COATED TABLET
     Route: 048
     Dates: end: 20140223
  2. DIAMICRON [Suspect]
     Dosage: STRENTH: 60MG?TABLET
     Route: 048
     Dates: end: 20140223

REACTIONS (4)
  - Hypoglycaemia [Recovered/Resolved]
  - Constipation [Recovered/Resolved]
  - Weight decreased [Recovering/Resolving]
  - Diarrhoea [Recovered/Resolved]
